FAERS Safety Report 9917076 (Version 3)
Quarter: 2014Q1

REPORT INFORMATION
  Report Type: Spontaneous
  Country: US (occurrence: US)
  Receive Date: 20140221
  Receipt Date: 20140314
  Transmission Date: 20141002
  Serious: Yes (Other)
  Sender: FDA-Public Use
  Company Number: US-EXELIXIS-CABO-13002742

PATIENT
  Age: 73 Year
  Sex: Male
  Weight: 76.19 kg

DRUGS (13)
  1. COMETRIQ [Suspect]
     Indication: THYROID CANCER
     Dosage: 100 MG, UNK
     Dates: start: 20130321, end: 20130813
  2. COMETRIQ [Suspect]
     Dosage: 60 MG, QD
     Route: 048
     Dates: start: 20130814
  3. LEVOTHYROXINE [Concomitant]
  4. AMLODIPINE [Concomitant]
  5. OMEPRAZOLE [Concomitant]
  6. ATORVASTATIN [Concomitant]
  7. CARVEDILOL [Concomitant]
  8. VITAMIN D3 [Concomitant]
  9. HYDROCODONE [Concomitant]
  10. MAGNESIUM [Concomitant]
  11. SUTENT [Concomitant]
  12. MIGOXIDE [Concomitant]
  13. SLOW MAG [Concomitant]

REACTIONS (4)
  - Rib fracture [Recovered/Resolved]
  - Fall [Unknown]
  - Diarrhoea [Not Recovered/Not Resolved]
  - Dehydration [Unknown]
